FAERS Safety Report 15879640 (Version 2)
Quarter: 2019Q1

REPORT INFORMATION
  Report Type: Spontaneous
  Country: GB (occurrence: GB)
  Receive Date: 20190128
  Receipt Date: 20190320
  Transmission Date: 20190417
  Serious: Yes (Other)
  Sender: FDA-Public Use
  Company Number: GB-BIODELIVERY SCIENCES INTERNATIONAL-2019BDSI0063

PATIENT
  Age: 18 Year
  Sex: Male
  Weight: 42 kg

DRUGS (14)
  1. PROPOFOL. [Suspect]
     Active Substance: PROPOFOL
     Indication: ANAESTHESIA
     Route: 042
     Dates: start: 20180514, end: 20180514
  2. KETAMINE [Suspect]
     Active Substance: KETAMINE
     Indication: SEDATION
     Dosage: TOTAL,25 MG BEFORE SKIN INCISION AND 25 MG ABOUT AN OUR BEFORE THE END OF SURGERY
     Route: 065
     Dates: start: 20180514, end: 20180514
  3. MAGNESIUM SULFATE. [Suspect]
     Active Substance: MAGNESIUM SULFATE
     Indication: PRODUCT USED FOR UNKNOWN INDICATION
     Route: 065
  4. REMIFENTANIL [Suspect]
     Active Substance: REMIFENTANIL
     Dosage: PER MINUTE
     Route: 042
     Dates: start: 20180514, end: 20180514
  5. CLONIDINE. [Suspect]
     Active Substance: CLONIDINE
     Indication: SEDATION
     Dosage: TOTAL,4 ALIQUOTS OF 15 MICROGRAMS OVER SEVERAL HOURS;
     Route: 065
     Dates: start: 20180514, end: 20180514
  6. GABAPENTIN. [Suspect]
     Active Substance: GABAPENTIN
     Indication: PRODUCT USED FOR UNKNOWN INDICATION
     Dosage: TOTAL,THE NIGHT BEFORE SURGERY AND ON THE MORNING OF SURGERY
     Route: 065
     Dates: start: 20180513, end: 20180515
  7. DIAZEPAM. [Suspect]
     Active Substance: DIAZEPAM
     Indication: ANXIETY
     Route: 065
     Dates: start: 20180513, end: 20180513
  8. FENTANYL. [Suspect]
     Active Substance: FENTANYL
     Indication: SEDATION
     Dates: start: 20180514, end: 20180514
  9. FENTANYL CITRATE. [Suspect]
     Active Substance: FENTANYL CITRATE
     Indication: PRODUCT USED FOR UNKNOWN INDICATION
     Route: 065
  10. TRANEXAMIC ACID. [Suspect]
     Active Substance: TRANEXAMIC ACID
     Indication: PRODUCT USED FOR UNKNOWN INDICATION
     Route: 065
  11. REMIFENTANIL [Suspect]
     Active Substance: REMIFENTANIL
     Indication: SEDATION
     Dosage: PER MINUTE
     Route: 042
  12. GABAPENTIN. [Suspect]
     Active Substance: GABAPENTIN
     Route: 065
     Dates: start: 20180513, end: 20180515
  13. MIDAZOLAM [Suspect]
     Active Substance: MIDAZOLAM HYDROCHLORIDE
     Indication: ANXIETY
     Dosage: HALF AN HOUR BEFORE INDUCTION OF ANAESTHESIA
     Dates: start: 20180514, end: 20180514
  14. TRANEXAMIC ACID. [Suspect]
     Active Substance: TRANEXAMIC ACID
     Indication: SEDATION
     Route: 042
     Dates: start: 20180514, end: 20180514

REACTIONS (7)
  - Confusional state [Recovered/Resolved]
  - Delirium [Recovered/Resolved]
  - Disorientation [Recovered/Resolved]
  - Nystagmus [Recovered/Resolved]
  - Aphasia [Recovered/Resolved]
  - Somnolence [Recovering/Resolving]
  - Drug interaction [Recovered/Resolved]

NARRATIVE: CASE EVENT DATE: 20180514
